FAERS Safety Report 4958910-2 (Version None)
Quarter: 2006Q1

REPORT INFORMATION
  Report Type: 
  Country: None (occurrence: None)
  Receive Date: 20060324
  Receipt Date: 20060313
  Transmission Date: 20060701
  Serious: Yes (Death)
  Sender: FDA-Public Use
  Company Number: GBWYE464713MAR06

PATIENT
  Age: 50 Year
  Sex: Male

DRUGS (2)
  1. EFFEXOR [Suspect]
     Dates: start: 20060222
  2. ABILIFY [Suspect]
     Dosage: 15 MG 1X PER 1 DAY ORAL
     Route: 048
     Dates: start: 20060222

REACTIONS (3)
  - CARDIAC DISORDER [None]
  - DRUG INTERACTION [None]
  - OVERDOSE [None]
